FAERS Safety Report 7177257-X (Version None)
Quarter: 2010Q4

REPORT INFORMATION
  Report Type: 
  Country: None (occurrence: None)
  Receive Date: 20101220
  Receipt Date: 20101213
  Transmission Date: 20110411
  Serious: Yes (Hospitalization)
  Sender: FDA-Public Use
  Company Number: CA-ROCHE-748217

PATIENT
  Age: 52 Year
  Sex: Male
  Weight: 73.5 kg

DRUGS (4)
  1. TAMIFLU [Suspect]
     Route: 048
  2. PRAZOSIN HCL [Concomitant]
  3. RESTORIL [Concomitant]
  4. SERTRALINE HYDROCHLORIDE [Concomitant]

REACTIONS (3)
  - DEPRESSION [None]
  - FLAT AFFECT [None]
  - SUICIDAL IDEATION [None]
